FAERS Safety Report 20913313 (Version 1)
Quarter: 2022Q2

REPORT INFORMATION
  Report Type: Spontaneous
  Country: US (occurrence: US)
  Receive Date: 20220603
  Receipt Date: 20220603
  Transmission Date: 20220721
  Serious: Yes (Other)
  Sender: FDA-Public Use
  Company Number: US-BIOGEN-2021BI01041865

PATIENT
  Sex: Male

DRUGS (2)
  1. SPINRAZA [Suspect]
     Active Substance: NUSINERSEN
     Indication: Product used for unknown indication
     Route: 065
  2. SPINRAZA [Suspect]
     Active Substance: NUSINERSEN
     Route: 065
     Dates: start: 20190107

REACTIONS (6)
  - Suicidal ideation [Not Recovered/Not Resolved]
  - Depression [Not Recovered/Not Resolved]
  - Affective disorder [Unknown]
  - Loss of therapeutic response [Unknown]
  - Post lumbar puncture syndrome [Unknown]
  - Fall [Unknown]
